FAERS Safety Report 21733325 (Version 14)
Quarter: 2025Q3

REPORT INFORMATION
  Report Type: Spontaneous
  Country: CA (occurrence: CA)
  Receive Date: 20221215
  Receipt Date: 20250911
  Transmission Date: 20251021
  Serious: Yes (Other)
  Sender: CELLTRION
  Company Number: CA-CELLTRION INC.-2022CA020790

PATIENT

DRUGS (17)
  1. TRUXIMA [Suspect]
     Active Substance: RITUXIMAB-ABBS
     Indication: Rheumatoid arthritis
     Route: 042
     Dates: start: 20220518
  2. TRUXIMA [Suspect]
     Active Substance: RITUXIMAB-ABBS
     Route: 042
     Dates: start: 20220518
  3. TRUXIMA [Suspect]
     Active Substance: RITUXIMAB-ABBS
     Route: 042
     Dates: start: 20220518
  4. TRUXIMA [Suspect]
     Active Substance: RITUXIMAB-ABBS
     Route: 042
     Dates: start: 20220518
  5. TRUXIMA [Suspect]
     Active Substance: RITUXIMAB-ABBS
     Route: 042
  6. TRUXIMA [Suspect]
     Active Substance: RITUXIMAB-ABBS
     Route: 042
     Dates: start: 20220518
  7. TRUXIMA [Suspect]
     Active Substance: RITUXIMAB-ABBS
     Route: 042
     Dates: start: 20220518
  8. TRUXIMA [Suspect]
     Active Substance: RITUXIMAB-ABBS
     Route: 042
     Dates: start: 20220518
  9. TRUXIMA [Suspect]
     Active Substance: RITUXIMAB-ABBS
     Route: 042
     Dates: start: 20220518
  10. PANTOPRAZOLE SODIUM [Concomitant]
     Active Substance: PANTOPRAZOLE SODIUM
  11. QUINAPRIL [Concomitant]
     Active Substance: QUINAPRIL
  12. PREDNISONE [Concomitant]
     Active Substance: PREDNISONE
  13. ZOPICLONE [Concomitant]
     Active Substance: ZOPICLONE
  14. DIPHENHYDRAMINE HYDROCHLORIDE [Concomitant]
     Active Substance: DIPHENHYDRAMINE HYDROCHLORIDE
     Indication: Premedication
  15. ACETAMINOPHEN [Concomitant]
     Active Substance: ACETAMINOPHEN
     Indication: Premedication
  16. METHYLPREDNISOLONE ACETATE [Concomitant]
     Active Substance: METHYLPREDNISOLONE ACETATE
     Indication: Premedication
  17. RISEDRONATE SODIUM [Concomitant]
     Active Substance: RISEDRONATE SODIUM
     Indication: Premedication
     Dosage: 1 TABLET MONTHLY
     Route: 048

REACTIONS (16)
  - Knee arthroplasty [Recovered/Resolved]
  - Rheumatoid arthritis [Unknown]
  - Cataract [Unknown]
  - Nephrolithiasis [Unknown]
  - Hypertension [Unknown]
  - SARS-CoV-2 test positive [Unknown]
  - COVID-19 [Unknown]
  - Osteolysis [Unknown]
  - Rash [Unknown]
  - Prostatomegaly [Unknown]
  - Fall [Unknown]
  - Post procedural swelling [Unknown]
  - Infection [Unknown]
  - Intentional dose omission [Unknown]
  - Treatment delayed [Unknown]
  - Off label use [Unknown]

NARRATIVE: CASE EVENT DATE: 20221130
